FAERS Safety Report 17827089 (Version 2)
Quarter: 2020Q3

REPORT INFORMATION
  Report Type: Spontaneous
  Country: JP (occurrence: JP)
  Receive Date: 20200526
  Receipt Date: 20200715
  Transmission Date: 20201102
  Serious: Yes (Hospitalization)
  Sender: FDA-Public Use
  Company Number: JP-B.I. PHARMACEUTICALS,INC./RIDGEFIELD-2020-NB-026502

PATIENT
  Age: 9 Decade

DRUGS (2)
  1. JARDIANCE [Suspect]
     Active Substance: EMPAGLIFLOZIN
     Indication: TYPE 2 DIABETES MELLITUS
     Route: 048
     Dates: start: 2020
  2. CORTRIL [Concomitant]
     Active Substance: HYDROCORTISONE
     Indication: PRODUCT USED FOR UNKNOWN INDICATION
     Route: 065

REACTIONS (3)
  - Necrotising fasciitis [Not Recovered/Not Resolved]
  - Cellulitis [Not Recovered/Not Resolved]
  - Hepatocellular carcinoma [Unknown]

NARRATIVE: CASE EVENT DATE: 202005
